FAERS Safety Report 9241116 (Version 1)
Quarter: 2013Q1

REPORT INFORMATION
  Report Type: Spontaneous
  Country: US (occurrence: None)
  Receive Date: 20121120
  Receipt Date: 20121120
  Transmission Date: 20140127
  Serious: No
  Sender: FDA-Public Use
  Company Number: 1000039150

PATIENT
  Age: 69 Year
  Sex: Male

DRUGS (11)
  1. VIIBRYD [Suspect]
     Indication: DEPRESSION
     Dosage: 1 IN 1 D
     Route: 048
     Dates: start: 201208, end: 2012
  2. VIIBRYD [Suspect]
     Indication: ANXIETY
     Dosage: 1 IN 1 D
     Route: 048
     Dates: start: 201208, end: 2012
  3. VIIBRYD [Suspect]
     Dosage: 1 IN 1 D
     Route: 048
     Dates: start: 201208, end: 2012
  4. SEROQUEL (QUETIAPINE FUMARATE) (QUETIAPINE FUMARATE) [Concomitant]
  5. KLONOPIN (CLONAZEPAM) [Concomitant]
  6. GABAPENTIN [Concomitant]
  7. MELOXICAM [Concomitant]
  8. BUSPIRONE [Concomitant]
  9. LEVOTHYROXINE (LEVOTHYROXINE SODIUM) [Concomitant]
  10. AMLODIPINE [Concomitant]
  11. FOLIC ACID [Concomitant]

REACTIONS (2)
  - Depressed mood [None]
  - Terminal insomnia [None]
